FAERS Safety Report 11543319 (Version 8)
Quarter: 2015Q4

REPORT INFORMATION
  Report Type: Spontaneous
  Country: US (occurrence: US)
  Receive Date: 20150923
  Receipt Date: 20151209
  Transmission Date: 20160304
  Serious: No
  Sender: FDA-Public Use
  Company Number: US-ACTELION PHARMACEUTICALS US, INC.-A-NJ2015-124340

PATIENT
  Age: 76 Year
  Sex: Female

DRUGS (5)
  1. OPSUMIT [Suspect]
     Active Substance: MACITENTAN
     Indication: PULMONARY ARTERIAL HYPERTENSION
     Dosage: 10 MG, QD
     Route: 048
     Dates: start: 20150909
  2. METOPROLOL [Concomitant]
     Active Substance: METOPROLOL
     Dosage: 50 MG, BID
  3. RAMIPRIL. [Concomitant]
     Active Substance: RAMIPRIL
     Dosage: 10 MG, QD
  4. REVATIO [Concomitant]
     Active Substance: SILDENAFIL CITRATE
     Dosage: 20 UNK, TID
     Dates: start: 2014
  5. COLCRYS [Concomitant]
     Active Substance: COLCHICINE
     Dosage: 0.3 MG, 1/2 TABLET QD

REACTIONS (24)
  - Hypertension [Unknown]
  - Decreased appetite [Unknown]
  - Hypersensitivity [Unknown]
  - Dizziness [Unknown]
  - Abdominal distension [Unknown]
  - Swelling [Unknown]
  - Pain in extremity [Recovering/Resolving]
  - Fatigue [Unknown]
  - Dyspnoea [Unknown]
  - Blood glucose increased [Unknown]
  - Nasal congestion [Unknown]
  - No therapeutic response [Unknown]
  - Oedema [Unknown]
  - Insomnia [Not Recovered/Not Resolved]
  - Weight decreased [Unknown]
  - Anxiety [Unknown]
  - Sneezing [Unknown]
  - Blood potassium abnormal [Unknown]
  - Oxygen consumption [Unknown]
  - Condition aggravated [Unknown]
  - Abdominal pain upper [Recovering/Resolving]
  - Fluid retention [Unknown]
  - Sinus disorder [Unknown]
  - Cough [Unknown]

NARRATIVE: CASE EVENT DATE: 201509
